FAERS Safety Report 13633303 (Version 1)
Quarter: 2017Q2

REPORT INFORMATION
  Report Type: Spontaneous
  Country: US (occurrence: US)
  Receive Date: 20170531
  Receipt Date: 20170531
  Transmission Date: 20170830
  Serious: No
  Sender: FDA-Public Use
  Company Number: US-ASTELLAS-1525882

PATIENT
  Sex: Female

DRUGS (10)
  1. AMBIEN [Concomitant]
     Active Substance: ZOLPIDEM TARTRATE
  2. GABAPENTIN. [Concomitant]
     Active Substance: GABAPENTIN
  3. PROVERA [Concomitant]
     Active Substance: MEDROXYPROGESTERONE ACETATE
  4. TARCEVA [Suspect]
     Active Substance: ERLOTINIB HYDROCHLORIDE
     Indication: BRONCHIAL CARCINOMA
     Route: 048
     Dates: start: 20140429
  5. PREMARIN [Concomitant]
     Active Substance: ESTROGENS, CONJUGATED
  6. FOLIC ACID. [Concomitant]
     Active Substance: FOLIC ACID
  7. PRILOSEC [Concomitant]
     Active Substance: OMEPRAZOLE MAGNESIUM
  8. FISH OIL [Concomitant]
     Active Substance: FISH OIL
  9. CREON [Concomitant]
     Active Substance: PANCRELIPASE AMYLASE\PANCRELIPASE LIPASE\PANCRELIPASE PROTEASE
  10. TARCEVA [Suspect]
     Active Substance: ERLOTINIB HYDROCHLORIDE
     Indication: METASTASES TO LUNG

REACTIONS (1)
  - Drug ineffective [Unknown]
